FAERS Safety Report 5470542-9 (Version None)
Quarter: 2007Q3

REPORT INFORMATION
  Report Type: 
  Country: None (occurrence: None)
  Receive Date: 20070927
  Receipt Date: 20070927
  Transmission Date: 20080115
  Serious: No
  Sender: FDA-Public Use
  Company Number: None

PATIENT
  Age: 2 Year
  Sex: Female
  Weight: 14.5151 kg

DRUGS (1)
  1. ALDARA [Suspect]
     Indication: MOLLUSCUM CONTAGIOSUM
     Dosage: 1 PACKET EVERYNIGHT AT BEDT TOP ONE APPLICATION
     Route: 061
     Dates: start: 20070912, end: 20070912

REACTIONS (4)
  - BLISTER [None]
  - CAUSTIC INJURY [None]
  - SKIN EXFOLIATION [None]
  - SKIN HAEMORRHAGE [None]
